FAERS Safety Report 7174227-2 (Version None)
Quarter: 2010Q4

REPORT INFORMATION
  Report Type: 
  Country: None (occurrence: None)
  Receive Date: 20101219
  Receipt Date: 20100322
  Transmission Date: 20110411
  Serious: Yes (Hospitalization)
  Sender: FDA-Public Use
  Company Number: US-AMGEN-QUU398086

PATIENT

DRUGS (6)
  1. ENBREL [Suspect]
     Indication: RHEUMATOID ARTHRITIS
     Dosage: 50 MG, QWK
     Route: 058
     Dates: start: 20000322, end: 20100301
  2. METHOTREXATE [Suspect]
     Dosage: 2.5 MG, QD
     Route: 048
     Dates: start: 19981001
  3. UNSPECIFIED ANTIBIOTIC [Concomitant]
  4. CELECOXIB [Concomitant]
     Dosage: UNK UNK, UNK
     Dates: start: 19991004
  5. TRAMADOL HYDROCHLORIDE [Concomitant]
     Dosage: UNK UNK, UNK
     Dates: start: 20080829
  6. DEXTROPROPOXYPHENE NAPSILATE W/ ACETAMINOPHEN [Concomitant]
     Dosage: UNK UNK, UNK
     Dates: start: 20090909

REACTIONS (2)
  - CELLULITIS [None]
  - NODULE ON EXTREMITY [None]
